FAERS Safety Report 12285547 (Version 1)
Quarter: 2016Q2

REPORT INFORMATION
  Report Type: Spontaneous
  Country: FR (occurrence: FR)
  Receive Date: 20160420
  Receipt Date: 20160420
  Transmission Date: 20160815
  Serious: Yes (Other)
  Sender: FDA-Public Use
  Company Number: FR-TEVA-650975ISR

PATIENT
  Age: 13 Year
  Sex: Male
  Weight: 75 kg

DRUGS (2)
  1. ETOPOSIDE TEVA [Suspect]
     Active Substance: ETOPOSIDE
     Indication: PINEAL PARENCHYMAL NEOPLASM MALIGNANT
     Route: 041
     Dates: start: 20151217, end: 20151222
  2. TEPADINA [Suspect]
     Active Substance: THIOTEPA
     Indication: PINEAL PARENCHYMAL NEOPLASM MALIGNANT
     Route: 041
     Dates: start: 20151217, end: 20151222

REACTIONS (6)
  - Pyrexia [Recovered/Resolved]
  - Nausea [Recovered/Resolved]
  - Mucosal inflammation [Recovering/Resolving]
  - Malnutrition [Recovering/Resolving]
  - Vomiting [Recovered/Resolved]
  - Rash [Recovered/Resolved]

NARRATIVE: CASE EVENT DATE: 20151225
